FAERS Safety Report 20047218 (Version 2)
Quarter: 2021Q4

REPORT INFORMATION
  Report Type: Spontaneous
  Country: US (occurrence: US)
  Receive Date: 20211109
  Receipt Date: 20211202
  Transmission Date: 20220303
  Serious: Yes (Other)
  Sender: FDA-Public Use
  Company Number: US-AUROBINDO-AUR-APL-2021-044908

PATIENT
  Age: 60 Year
  Sex: Male

DRUGS (9)
  1. BUPIVACAINE HYDROCHLORIDE [Suspect]
     Active Substance: BUPIVACAINE HYDROCHLORIDE
     Indication: Neck pain
     Dosage: 10 MILLIGRAM PER MILLILITRE (3.1 MG/DAY)
     Route: 065
  2. BACLOFEN [Suspect]
     Active Substance: BACLOFEN
     Indication: Neck pain
     Dosage: 4 MILLIGRAM PER MILLILITRE (1.25 MG/DAY)
     Route: 065
  3. NALOXONE HYDROCHLORIDE [Suspect]
     Active Substance: NALOXONE HYDROCHLORIDE
     Indication: Depression
     Dosage: 0.4 MILLIGRAM/HOUR
     Route: 040
  4. NALOXONE HYDROCHLORIDE [Suspect]
     Active Substance: NALOXONE HYDROCHLORIDE
     Dosage: 0.5 MILLIGRAM/HOUR
     Route: 042
  5. NALOXONE HYDROCHLORIDE [Suspect]
     Active Substance: NALOXONE HYDROCHLORIDE
     Dosage: 0.3 MILLIGRAM/HOUR
     Route: 042
  6. KETAMINE HYDROCHLORIDE [Suspect]
     Active Substance: KETAMINE HYDROCHLORIDE
     Indication: Intraoperative care
     Dosage: 20 MILLIGRAM
     Route: 065
  7. FENTANYL [Suspect]
     Active Substance: FENTANYL
     Indication: Intraoperative care
     Dosage: 200 MICROGRAM
     Route: 042
  8. MORPHINE [Suspect]
     Active Substance: MORPHINE
     Indication: Neck pain
     Dosage: 15 MILLIGRAM PER MILLILITRE (4.7 MG/DAY)
     Route: 065
  9. SUFENTANIL [Suspect]
     Active Substance: SUFENTANIL
     Indication: Intraoperative care
     Dosage: 23 MICROGRAM
     Route: 065

REACTIONS (5)
  - Hypotension [Unknown]
  - Respiratory failure [Unknown]
  - Respiratory depression [Unknown]
  - Somnolence [Unknown]
  - Hypercapnia [Unknown]
